FAERS Safety Report 17306892 (Version 2)
Quarter: 2020Q2

REPORT INFORMATION
  Report Type: Spontaneous
  Country: US (occurrence: US)
  Receive Date: 20200123
  Receipt Date: 20200423
  Transmission Date: 20200713
  Serious: No
  Sender: FDA-Public Use
  Company Number: US-DERMIRA, INC.-US-2019DER000567

PATIENT
  Sex: Female

DRUGS (1)
  1. QBREXZA [Suspect]
     Active Substance: GLYCOPYRRONIUM TOSYLATE
     Indication: HYPERHIDROSIS
     Dosage: UNK, QD, PRN
     Route: 061
     Dates: start: 20191205

REACTIONS (5)
  - Eye irritation [Not Recovered/Not Resolved]
  - Intentional product misuse [Unknown]
  - Ocular hyperaemia [Not Recovered/Not Resolved]
  - Exposure via eye contact [Unknown]
  - Mydriasis [Recovered/Resolved]

NARRATIVE: CASE EVENT DATE: 20191205
